FAERS Safety Report 6679212-2 (Version None)
Quarter: 2010Q2

REPORT INFORMATION
  Report Type: 
  Country: None (occurrence: None)
  Receive Date: 20100413
  Receipt Date: 20100331
  Transmission Date: 20101027
  Serious: Yes (Other)
  Sender: FDA-Public Use
  Company Number: HK-BAYER-201021384GPV

PATIENT

DRUGS (2)
  1. CIPROFLOXACIN [Suspect]
     Indication: RESPIRATORY TRACT INFECTION
  2. CIPROFLOXACIN [Suspect]

REACTIONS (1)
  - PULMONARY TUBERCULOSIS [None]
